FAERS Safety Report 8029323-4 (Version None)
Quarter: 2012Q1

REPORT INFORMATION
  Report Type: 
  Country: None (occurrence: None)
  Receive Date: 20120106
  Receipt Date: 20120103
  Transmission Date: 20120608
  Serious: Yes (Other)
  Sender: FDA-Public Use
  Company Number: GB-ELI_LILLY_AND_COMPANY-GB201111002206

PATIENT
  Age: 64 Year
  Sex: Female
  Weight: 120 kg

DRUGS (8)
  1. INSULIN [Concomitant]
     Dosage: UNK
     Dates: end: 20080901
  2. METFORMIN HCL [Concomitant]
  3. VICTOZA [Concomitant]
     Dosage: UNK
     Dates: start: 20110101
  4. BYETTA [Suspect]
     Dosage: 10 UG, BID
     Dates: start: 20110901
  5. CANDESARTAN CILEXETIL [Concomitant]
     Dosage: 32 MG, UNKNOWN
  6. INDAPAMIDE [Concomitant]
  7. BYETTA [Suspect]
     Indication: TYPE 2 DIABETES MELLITUS
     Dosage: 10 UG, BID
     Route: 058
     Dates: start: 20080920, end: 20110101
  8. GABAPENTIN [Concomitant]
     Indication: NEUROPATHY PERIPHERAL
     Dosage: 900 MG, TID

REACTIONS (8)
  - PANCREATIC INSUFFICIENCY [None]
  - BLOOD GLUCOSE INCREASED [None]
  - INFLAMMATORY MARKER INCREASED [None]
  - AUTOIMMUNE PANCREATITIS [None]
  - BLOOD ALBUMIN DECREASED [None]
  - DIARRHOEA [None]
  - ABDOMINAL PAIN [None]
  - FAECAL ELASTASE CONCENTRATION DECREASED [None]
